FAERS Safety Report 7733710-9 (Version None)
Quarter: 2011Q3

REPORT INFORMATION
  Report Type: 
  Country: None (occurrence: None)
  Receive Date: 20110902
  Receipt Date: 20110902
  Transmission Date: 20111222
  Serious: Yes (Hospitalization)
  Sender: FDA-Public Use
  Company Number: None

PATIENT
  Age: 51 Year
  Sex: Female

DRUGS (2)
  1. WELLBUTRIN [Suspect]
     Dosage: 75 MG
  2. EFFEXOR [Suspect]
     Dosage: 75 MG

REACTIONS (4)
  - TREMOR [None]
  - NAUSEA [None]
  - VOMITING [None]
  - HYPERHIDROSIS [None]
